FAERS Safety Report 25646828 (Version 1)
Quarter: 2025Q3

REPORT INFORMATION
  Report Type: Report from Study
  Country: IL (occurrence: IL)
  Receive Date: 20250805
  Receipt Date: 20250805
  Transmission Date: 20251021
  Serious: Yes (Death, Hospitalization, Other)
  Sender: TAKEDA
  Company Number: IL-JNJFOC-20250735041

PATIENT
  Age: 78 Year
  Sex: Female
  Weight: 45 kg

DRUGS (9)
  1. BORTEZOMIB [Suspect]
     Active Substance: BORTEZOMIB
     Indication: Plasma cell myeloma
     Dosage: 1.9 MILLIGRAM, 1/WEEK
     Dates: start: 20250622, end: 20250629
  2. DEXAMETHASONE [Suspect]
     Active Substance: DEXAMETHASONE
     Indication: Plasma cell myeloma refractory
     Dosage: 20 MILLIGRAM, 1/WEEK
     Dates: start: 20250622, end: 20250629
  3. SELINEXOR [Suspect]
     Active Substance: SELINEXOR
     Indication: Hyperlipidaemia
     Dosage: 60 MILLIGRAM, 1/WEEK
     Dates: start: 20250622, end: 20250629
  4. LIPITOR [Concomitant]
     Active Substance: ATORVASTATIN CALCIUM
     Indication: Hyperlipidaemia
     Dosage: 10 MILLIGRAM, QD
     Dates: start: 2010
  5. ZOVIRAX [Concomitant]
     Active Substance: ACYCLOVIR
     Indication: Antiviral prophylaxis
     Dosage: 400 MILLIGRAM, QD
     Dates: start: 2020
  6. ELIQUIS [Concomitant]
     Active Substance: APIXABAN
     Indication: Pulmonary embolism
     Dosage: 2.5 MILLIGRAM, Q12H
     Dates: start: 202412
  7. BISOPROLOL [Concomitant]
     Active Substance: BISOPROLOL
     Indication: Pulmonary embolism
     Dosage: 2.5 MILLIGRAM, QD
     Dates: start: 202412
  8. FUROSEMIDE [Concomitant]
     Active Substance: FUROSEMIDE
     Indication: Oedema peripheral
     Dosage: 40 MILLIGRAM, QD
     Dates: start: 2010
  9. ALDACTONE [Concomitant]
     Active Substance: SPIRONOLACTONE
     Indication: Hypertension
     Dosage: 25 MILLIGRAM, QD
     Dates: start: 2018

REACTIONS (3)
  - Plasma cell myeloma [Fatal]
  - Urinary tract infection [Not Recovered/Not Resolved]
  - Platelet count decreased [Unknown]

NARRATIVE: CASE EVENT DATE: 20250706
